FAERS Safety Report 12633472 (Version 6)
Quarter: 2017Q1

REPORT INFORMATION
  Report Type: Report from Study
  Country: CA (occurrence: CA)
  Receive Date: 20160808
  Receipt Date: 20170222
  Transmission Date: 20170428
  Serious: Yes (Other)
  Sender: FDA-Public Use
  Company Number: CA-JNJFOC-20160620163

PATIENT
  Age: 74 Year
  Sex: Male

DRUGS (1)
  1. IMBRUVICA [Suspect]
     Active Substance: IBRUTINIB
     Indication: MANTLE CELL LYMPHOMA
     Route: 048
     Dates: start: 20160622

REACTIONS (16)
  - Urinary tract infection [Not Recovered/Not Resolved]
  - Contusion [Recovered/Resolved]
  - Melaena [Recovered/Resolved]
  - Basal cell carcinoma [Recovered/Resolved]
  - Abdominal discomfort [Unknown]
  - Cough [Not Recovered/Not Resolved]
  - Weight decreased [Unknown]
  - Neck pain [Recovering/Resolving]
  - Lung disorder [Not Recovered/Not Resolved]
  - Fatigue [Not Recovered/Not Resolved]
  - Malignant melanoma [Recovered/Resolved]
  - Procedural pain [Recovered/Resolved]
  - Skin discolouration [Recovering/Resolving]
  - Tumour pain [Recovered/Resolved]
  - Pain in extremity [Unknown]
  - Nausea [Not Recovered/Not Resolved]

NARRATIVE: CASE EVENT DATE: 20160622
